FAERS Safety Report 7286187-4 (Version None)
Quarter: 2011Q1

REPORT INFORMATION
  Report Type: 
  Country: None (occurrence: None)
  Receive Date: 20110210
  Receipt Date: 20110128
  Transmission Date: 20110831
  Serious: Yes (Hospitalization, Other)
  Sender: FDA-Public Use
  Company Number: PHHY2011TN07367

PATIENT
  Age: 67 Year
  Sex: Female

DRUGS (2)
  1. EXFORGE [Suspect]
     Dosage: 5/80 G, ONE TABLET, DAILY
     Route: 048
     Dates: start: 20100917
  2. PLAVIX [Concomitant]

REACTIONS (1)
  - ACUTE CORONARY SYNDROME [None]
